APPROVED DRUG PRODUCT: LIORESAL
Active Ingredient: BACLOFEN
Strength: 0.05MG/ML
Dosage Form/Route: INJECTABLE;INTRATHECAL
Application: N020075 | Product #003 | TE Code: AP
Applicant: AMNEAL PHARMACEUTICALS LLC
Approved: Nov 7, 1996 | RLD: Yes | RS: Yes | Type: RX